FAERS Safety Report 4313073-1 (Version None)
Quarter: 2004Q1

REPORT INFORMATION
  Report Type: 
  Country: None (occurrence: None)
  Receive Date: 20040305
  Receipt Date: 20040305
  Transmission Date: 20041129
  Serious: Yes (Life-Threatening)
  Sender: FDA-Public Use
  Company Number: None

PATIENT
  Age: 57 Year
  Sex: Female
  Weight: 68 kg

DRUGS (1)
  1. ALTEPLASE 1 MG/ML GENENTECH [Suspect]
     Indication: ISCHAEMIC STROKE
     Dosage: 61 1 HR INTRAVENOUS
     Route: 042
     Dates: start: 20040226, end: 20040226

REACTIONS (5)
  - CAROTID ARTERY STENOSIS [None]
  - CEREBRAL HAEMORRHAGE [None]
  - COMA [None]
  - HYDROCEPHALUS [None]
  - HYPERTENSION [None]
